FAERS Safety Report 12994830 (Version 2)
Quarter: 2016Q4

REPORT INFORMATION
  Report Type: Spontaneous
  Country: CZ (occurrence: CZ)
  Receive Date: 20161202
  Receipt Date: 20161212
  Transmission Date: 20170207
  Serious: Yes (Other)
  Sender: FDA-Public Use
  Company Number: CZ-PFIZER INC-2016555744

PATIENT
  Sex: Male

DRUGS (2)
  1. METHOTREXATE SODIUM. [Suspect]
     Active Substance: METHOTREXATE SODIUM
     Indication: ANKYLOSING SPONDYLITIS
     Dosage: 10-15 MG WEEKLY
     Dates: start: 2014, end: 20160506
  2. SIMPONI [Suspect]
     Active Substance: GOLIMUMAB
     Indication: ANKYLOSING SPONDYLITIS
     Dosage: UNK
     Dates: start: 20160408, end: 20160506

REACTIONS (4)
  - Rash generalised [Unknown]
  - Colitis [Recovered/Resolved]
  - Pharyngitis [Unknown]
  - Syphilis [Recovered/Resolved]

NARRATIVE: CASE EVENT DATE: 201605
